FAERS Safety Report 21847156 (Version 2)
Quarter: 2023Q1

REPORT INFORMATION
  Report Type: Report from Study
  Country: US (occurrence: US)
  Receive Date: 20230111
  Receipt Date: 20230310
  Transmission Date: 20230417
  Serious: No
  Sender: FDA-Public Use
  Company Number: US-ABBVIE-4227989

PATIENT
  Sex: Female

DRUGS (2)
  1. SKYRIZI [Suspect]
     Active Substance: RISANKIZUMAB-RZAA
     Indication: Psoriatic arthropathy
     Route: 058
     Dates: start: 20220607
  2. COVID-19 vaccine (COVID-19 vaccine) [Concomitant]
     Indication: COVID-19 immunisation
     Route: 030

REACTIONS (8)
  - Gastroenteritis viral [Recovered/Resolved]
  - Fall [Recovering/Resolving]
  - Psoriatic arthropathy [Not Recovered/Not Resolved]
  - Sinusitis [Recovering/Resolving]
  - Fall [Recovered/Resolved]
  - Arthralgia [Unknown]
  - Myalgia [Unknown]
  - Gastroenteritis viral [Unknown]

NARRATIVE: CASE EVENT DATE: 20220101
